FAERS Safety Report 5066310-2 (Version None)
Quarter: 2006Q3

REPORT INFORMATION
  Report Type: 
  Country: None (occurrence: None)
  Receive Date: 20060801
  Receipt Date: 20060616
  Transmission Date: 20061208
  Serious: Yes (Hospitalization)
  Sender: FDA-Public Use
  Company Number: US-AMGEN-STX183309

PATIENT
  Sex: Female

DRUGS (1)
  1. ENBREL [Suspect]
     Indication: RHEUMATOID ARTHRITIS
     Route: 058
     Dates: start: 20010401

REACTIONS (4)
  - ANGIONEUROTIC OEDEMA [None]
  - KNEE ARTHROPLASTY [None]
  - PRURITUS [None]
  - URTICARIA [None]
